FAERS Safety Report 12534937 (Version 1)
Quarter: 2016Q3

REPORT INFORMATION
  Report Type: Spontaneous
  Country: US (occurrence: US)
  Receive Date: 20160707
  Receipt Date: 20160707
  Transmission Date: 20161109
  Serious: No
  Sender: FDA-Public Use
  Company Number: US-009507513-1606USA013008

PATIENT
  Age: 68 Year
  Sex: Male

DRUGS (4)
  1. PROSCAR [Suspect]
     Active Substance: FINASTERIDE
     Dosage: 10 MILLIGRAMS DAILY
     Route: 048
  2. PROSCAR [Suspect]
     Active Substance: FINASTERIDE
     Dosage: RECOMMENDED DOSAGE (5 MG A DAY)
     Route: 048
     Dates: start: 20160619
  3. PROSCAR [Suspect]
     Active Substance: FINASTERIDE
     Indication: BENIGN PROSTATIC HYPERPLASIA
     Dosage: RECOMMENDED DOSAGE (5 MG A DAY)
     Route: 048
  4. SYNTHROID [Concomitant]
     Active Substance: LEVOTHYROXINE SODIUM

REACTIONS (2)
  - Intentional overdose [Unknown]
  - Drug ineffective [Recovered/Resolved]
